FAERS Safety Report 9671642 (Version 1)
Quarter: 2013Q4

REPORT INFORMATION
  Report Type: Report from Study
  Country: US (occurrence: US)
  Receive Date: 20131106
  Receipt Date: 20131106
  Transmission Date: 20140711
  Serious: Yes (Hospitalization)
  Sender: FDA-Public Use
  Company Number: US-PURDUE-USA-2013-0108189

PATIENT
  Age: 52 Year
  Sex: Male

DRUGS (3)
  1. OXY CR [Suspect]
     Indication: PRODUCT USED FOR UNKNOWN INDICATION
     Dosage: UNK
     Route: 048
     Dates: start: 2010
  2. OXY CR [Suspect]
     Dosage: 40 MG, TID
     Route: 048
     Dates: start: 20131010
  3. OXY CR [Suspect]
     Dosage: 80 MG, TID
     Route: 048
     Dates: start: 20131010

REACTIONS (2)
  - Gallbladder operation [Recovered/Resolved]
  - Viral infection [Recovered/Resolved]
